FAERS Safety Report 5203539-4 (Version None)
Quarter: 2007Q1

REPORT INFORMATION
  Report Type: 
  Country: None (occurrence: None)
  Receive Date: 20070110
  Receipt Date: 20061228
  Transmission Date: 20070707
  Serious: Yes (Other)
  Sender: FDA-Public Use
  Company Number: PHMT2006CA02277

PATIENT
  Age: 39 Year
  Sex: Female

DRUGS (11)
  1. DICLOFENAC SODIUM [Suspect]
     Dosage: 75 MG, BID
     Route: 048
     Dates: start: 20060901
  2. FOLIC ACID [Concomitant]
  3. NEXIUM [Concomitant]
  4. DOMPERIDONE [Concomitant]
  5. ACTONEL [Concomitant]
  6. ZOFRAN [Concomitant]
  7. METHOTREXATE [Concomitant]
  8. OXYBUTYNIN [Concomitant]
  9. DETROL [Concomitant]
  10. CYCLOKAPRON [Concomitant]
  11. CIPRO [Concomitant]

REACTIONS (3)
  - BLISTER [None]
  - PSEUDOPORPHYRIA [None]
  - RASH [None]
